FAERS Safety Report 25496879 (Version 2)
Quarter: 2025Q3

REPORT INFORMATION
  Report Type: Report from Study
  Country: US (occurrence: US)
  Receive Date: 20250701
  Receipt Date: 20250731
  Transmission Date: 20251020
  Serious: Yes (Hospitalization, Other)
  Sender: TAKEDA
  Company Number: US-TAKEDA-2025TUS036249

PATIENT
  Sex: Male
  Weight: 108 kg

DRUGS (51)
  1. HUMAN IMMUNOGLOBULIN G [Suspect]
     Active Substance: HUMAN IMMUNOGLOBULIN G
     Indication: Immunodeficiency common variable
     Dosage: 400 MG/KG, Q4WEEKS
  2. EPINEPHRINE [Concomitant]
     Active Substance: EPINEPHRINE
  3. ACETAMINOPHEN [Concomitant]
     Active Substance: ACETAMINOPHEN
  4. DULOXETINE HYDROCHLORIDE [Concomitant]
     Active Substance: DULOXETINE HYDROCHLORIDE
  5. ATORVASTATIN CALCIUM [Concomitant]
     Active Substance: ATORVASTATIN CALCIUM
  6. MELATONIN [Concomitant]
     Active Substance: MELATONIN
  7. JARDIANCE [Concomitant]
     Active Substance: EMPAGLIFLOZIN
  8. DYMISTA [Concomitant]
     Active Substance: AZELASTINE HYDROCHLORIDE\FLUTICASONE PROPIONATE
  9. NASACORT [Concomitant]
     Active Substance: TRIAMCINOLONE ACETONIDE
  10. TIZANIDINE HYDROCHLORIDE [Concomitant]
     Active Substance: TIZANIDINE HYDROCHLORIDE
  11. TAMSULOSIN HYDROCHLORIDE [Concomitant]
     Active Substance: TAMSULOSIN HYDROCHLORIDE
  12. FOLIC ACID [Concomitant]
     Active Substance: FOLIC ACID
  13. ZINC SULFATE [Concomitant]
     Active Substance: ZINC SULFATE
  14. TESTOSTERONE CYPIONATE [Concomitant]
     Active Substance: TESTOSTERONE CYPIONATE
  15. AMOXICILLIN [Concomitant]
     Active Substance: AMOXICILLIN
  16. OXYCODONE HYDROCHLORIDE [Concomitant]
     Active Substance: OXYCODONE HYDROCHLORIDE
  17. Dulcolax [Concomitant]
  18. SODIUM CHLORIDE [Concomitant]
     Active Substance: SODIUM CHLORIDE
  19. ALBUTEROL SULFATE [Concomitant]
     Active Substance: ALBUTEROL SULFATE
  20. TRELEGY ELLIPTA [Concomitant]
     Active Substance: FLUTICASONE FUROATE\UMECLIDINIUM BROMIDE\VILANTEROL TRIFENATATE
  21. BISOPROLOL FUMARATE [Concomitant]
     Active Substance: BISOPROLOL FUMARATE
  22. PROTONIX [Concomitant]
     Active Substance: PANTOPRAZOLE SODIUM
  23. MORPHINE SULFATE [Concomitant]
     Active Substance: MORPHINE SULFATE
  24. ALENDRONATE SODIUM [Concomitant]
     Active Substance: ALENDRONATE SODIUM
  25. ELIQUIS [Concomitant]
     Active Substance: APIXABAN
  26. ZOLPIDEM TARTRATE [Concomitant]
     Active Substance: ZOLPIDEM TARTRATE
  27. PREGABALIN [Concomitant]
     Active Substance: PREGABALIN
  28. LANTUS SOLOSTAR [Concomitant]
     Active Substance: INSULIN GLARGINE
  29. HYDROXYCHLOROQUINE SULFATE [Concomitant]
     Active Substance: HYDROXYCHLOROQUINE SULFATE
  30. LIDOCAINE [Concomitant]
     Active Substance: LIDOCAINE
  31. LISINOPRIL [Concomitant]
     Active Substance: LISINOPRIL
  32. MONTELUKAST SODIUM [Concomitant]
     Active Substance: MONTELUKAST SODIUM
  33. PREDNISONE [Concomitant]
     Active Substance: PREDNISONE
  34. HYDROCHLOROTHIAZIDE [Concomitant]
     Active Substance: HYDROCHLOROTHIAZIDE
  35. CYCLOBENZAPRINE HYDROCHLORIDE [Concomitant]
     Active Substance: CYCLOBENZAPRINE HYDROCHLORIDE
  36. CLONAZEPAM [Concomitant]
     Active Substance: CLONAZEPAM
  37. METFORMIN HYDROCHLORIDE [Concomitant]
     Active Substance: METFORMIN HYDROCHLORIDE
  38. DIPHENHYDRAMINE HYDROCHLORIDE [Concomitant]
     Active Substance: DIPHENHYDRAMINE HYDROCHLORIDE
  39. VITAMIN D3 [Concomitant]
     Active Substance: CHOLECALCIFEROL
  40. IBUPROFEN [Concomitant]
     Active Substance: IBUPROFEN
  41. POLYETHYLENE GLYCOL [Concomitant]
     Active Substance: POLYETHYLENE GLYCOL
  42. DIPHENHYDRAMINE HYDROCHLORIDE [Concomitant]
     Active Substance: DIPHENHYDRAMINE HYDROCHLORIDE
  43. HYDROXYZINE HYDROCHLORIDE [Concomitant]
     Active Substance: HYDROXYZINE HYDROCHLORIDE
  44. TRULICITY [Concomitant]
     Active Substance: DULAGLUTIDE
  45. SODIUM CHLORIDE [Concomitant]
     Active Substance: SODIUM CHLORIDE
  46. MOVANTIK [Concomitant]
     Active Substance: NALOXEGOL OXALATE
  47. QUETIAPINE FUMARATE [Concomitant]
     Active Substance: QUETIAPINE FUMARATE
  48. ATOMOXETINE HYDROCHLORIDE [Concomitant]
     Active Substance: ATOMOXETINE HYDROCHLORIDE
  49. AMLODIPINE BESYLATE [Concomitant]
     Active Substance: AMLODIPINE BESYLATE
  50. VITAMIN B [Concomitant]
     Active Substance: VITAMIN B
  51. VENTOLIN HFA [Concomitant]
     Active Substance: ALBUTEROL SULFATE

REACTIONS (5)
  - Paraplegia [Unknown]
  - Urinary incontinence [Unknown]
  - Vasculitis [Unknown]
  - Anal incontinence [Unknown]
  - Upper respiratory tract infection [Recovering/Resolving]
